FAERS Safety Report 15909100 (Version 5)
Quarter: 2020Q1

REPORT INFORMATION
  Report Type: Report from Study
  Country: US (occurrence: US)
  Receive Date: 20190204
  Receipt Date: 20200108
  Transmission Date: 20200409
  Serious: Yes (Death, Hospitalization, Other)
  Sender: FDA-Public Use
  Company Number: PHEH2019US005092

PATIENT
  Age: 84 Year
  Sex: Female

DRUGS (2)
  1. ENTRESTO [Suspect]
     Active Substance: SACUBITRIL\VALSARTAN
     Route: 065
  2. ENTRESTO [Suspect]
     Active Substance: SACUBITRIL\VALSARTAN
     Indication: CARDIAC FAILURE CHRONIC
     Dosage: UNK
     Route: 065

REACTIONS (4)
  - Arthropathy [Unknown]
  - Dementia [Unknown]
  - Malaise [Unknown]
  - Death [Fatal]

NARRATIVE: CASE EVENT DATE: 20190418
